FAERS Safety Report 8504659-9 (Version None)
Quarter: 2012Q3

REPORT INFORMATION
  Report Type: 
  Country: None (occurrence: None)
  Receive Date: 20120711
  Receipt Date: 20120703
  Transmission Date: 20120928
  Serious: Yes (Life-Threatening, Hospitalization)
  Sender: FDA-Public Use
  Company Number: US-RB-042027-12

PATIENT
  Age: 56 Year
  Sex: Male

DRUGS (2)
  1. SUBOXONE [Suspect]
     Indication: PAIN
     Dosage: 40-80 MG DAILY
     Route: 060
     Dates: start: 20100101, end: 20120624
  2. SUBOXONE [Suspect]
     Indication: DRUG DEPENDENCE
     Dosage: 40-80 MG DAILY
     Route: 060
     Dates: start: 20100101, end: 20120624

REACTIONS (2)
  - ACCIDENT [None]
  - VASCULAR RUPTURE [None]
